FAERS Safety Report 4383620-2 (Version None)
Quarter: 2004Q2

REPORT INFORMATION
  Report Type: 
  Country: None (occurrence: None)
  Receive Date: 20040618
  Receipt Date: 20040610
  Transmission Date: 20050107
  Serious: Yes (Hospitalization)
  Sender: FDA-Public Use
  Company Number: 2004218464JP

PATIENT
  Age: 70 Year
  Sex: Female

DRUGS (4)
  1. AZULFIDINE [Suspect]
     Indication: RHEUMATOID ARTHRITIS
     Dosage: ORAL
     Route: 048
     Dates: end: 20040419
  2. METHOTREXATE [Suspect]
     Dosage: 5 MG, WEEKLY, ORAL
     Route: 048
     Dates: end: 20040419
  3. SELBEX (TEPRENONE) [Concomitant]
  4. INFREE [Concomitant]

REACTIONS (1)
  - INTERSTITIAL LUNG DISEASE [None]
